FAERS Safety Report 6432575-5 (Version None)
Quarter: 2009Q4

REPORT INFORMATION
  Report Type: 
  Country: None (occurrence: None)
  Receive Date: 20091109
  Receipt Date: 20091028
  Transmission Date: 20100525
  Serious: Yes (Death, Hospitalization)
  Sender: FDA-Public Use
  Company Number: TW-ELI_LILLY_AND_COMPANY-TW200910006974

PATIENT
  Sex: Male

DRUGS (4)
  1. ZYPREXA [Suspect]
     Dosage: 5 MG, UNK
     Route: 048
     Dates: start: 20020101, end: 20091012
  2. ZYPREXA [Suspect]
     Dosage: 15 MG, UNKNOWN
     Route: 065
     Dates: start: 20091013, end: 20091001
  3. ZYPREXA [Suspect]
     Dosage: 20 MG, UNKNOWN
     Route: 065
     Dates: start: 20091001
  4. ESTAZOLAM [Concomitant]
     Dosage: 2 MG, EACH EVENING
     Route: 048

REACTIONS (2)
  - DEATH [None]
  - HOSPITALISATION [None]
